FAERS Safety Report 9741932 (Version 1)
Quarter: 2013Q4

REPORT INFORMATION
  Report Type: Report from Study
  Country: US (occurrence: US)
  Receive Date: 20131210
  Receipt Date: 20131210
  Transmission Date: 20140711
  Serious: Yes (Hospitalization)
  Sender: FDA-Public Use
  Company Number: US-ROCHE-1312936

PATIENT
  Age: 90 Year
  Sex: Female

DRUGS (1)
  1. LUCENTIS [Suspect]
     Indication: AGE-RELATED MACULAR DEGENERATION
     Dosage: LAST DOSE ON 18/NOV/2013
     Route: 050

REACTIONS (8)
  - Fall [Unknown]
  - Suture insertion [Unknown]
  - Contusion [Unknown]
  - Hand fracture [Unknown]
  - Ocular hyperaemia [Unknown]
  - Asthenia [Unknown]
  - Stress [Unknown]
  - Disorientation [Unknown]
